FAERS Safety Report 21408210 (Version 2)
Quarter: 2022Q4

REPORT INFORMATION
  Report Type: Report from Study
  Country: CA (occurrence: CA)
  Receive Date: 20221004
  Receipt Date: 20221123
  Transmission Date: 20230112
  Serious: Yes (Hospitalization, Other)
  Sender: FDA-Public Use
  Company Number: CA-OTSUKA-2021_012695

PATIENT
  Sex: Female

DRUGS (1)
  1. ARIPIPRAZOLE [Suspect]
     Active Substance: ARIPIPRAZOLE
     Indication: Product used for unknown indication
     Dosage: 400 MG, (EVERY 3 WEEK)
     Route: 030

REACTIONS (17)
  - Infection [Not Recovered/Not Resolved]
  - Renal failure [Unknown]
  - Sepsis [Recovered/Resolved]
  - Gastroenteritis [Recovered/Resolved]
  - Vomiting [Not Recovered/Not Resolved]
  - Generalised oedema [Unknown]
  - Renal disorder [Unknown]
  - Oedema peripheral [Unknown]
  - Depression [Recovered/Resolved]
  - Blood pressure increased [Not Recovered/Not Resolved]
  - Decreased appetite [Not Recovered/Not Resolved]
  - Fatigue [Unknown]
  - Headache [Not Recovered/Not Resolved]
  - Product dispensing error [Unknown]
  - Product availability issue [Unknown]
  - Inappropriate schedule of product administration [Unknown]
  - Circumstance or information capable of leading to medication error [Unknown]
